FAERS Safety Report 13508846 (Version 1)
Quarter: 2017Q2

REPORT INFORMATION
  Report Type: Report from Study
  Country: None (occurrence: BR)
  Receive Date: 20170503
  Receipt Date: 20170503
  Transmission Date: 20170830
  Serious: Yes (Other)
  Sender: FDA-Public Use
  Company Number: BR-ABBVIE-17K-020-1960088-00

PATIENT
  Age: 53 Year
  Sex: Male
  Weight: 78 kg

DRUGS (1)
  1. HUMIRA [Suspect]
     Active Substance: ADALIMUMAB
     Indication: ANKYLOSING SPONDYLITIS
     Route: 058
     Dates: start: 20131007, end: 20170206

REACTIONS (8)
  - Pain in extremity [Recovering/Resolving]
  - Laceration [Recovered/Resolved]
  - Influenza [Not Recovered/Not Resolved]
  - Catarrh [Not Recovered/Not Resolved]
  - Face injury [Recovered/Resolved]
  - Throat irritation [Not Recovered/Not Resolved]
  - Facial bones fracture [Recovered/Resolved]
  - Fall [Recovered/Resolved]

NARRATIVE: CASE EVENT DATE: 20170206
